FAERS Safety Report 10877285 (Version 2)
Quarter: 2015Q3

REPORT INFORMATION
  Report Type: Spontaneous
  Country: JP (occurrence: JP)
  Receive Date: 20150302
  Receipt Date: 20150706
  Transmission Date: 20151125
  Serious: Yes (Death)
  Sender: FDA-Public Use
  Company Number: JP-TEVA-542848ISR

PATIENT
  Age: 60 Year
  Sex: Male
  Weight: 40 kg

DRUGS (6)
  1. DECADRON [Concomitant]
     Active Substance: DEXAMETHASONE
     Dosage: 3.3 MILLIGRAM DAILY;
     Route: 051
     Dates: start: 20140821, end: 20140910
  2. E-FEN BUCCAL(FENTANYL CITRATE) [Suspect]
     Active Substance: FENTANYL CITRATE
     Indication: BREAKTHROUGH PAIN
     Dosage: DAILY DOSE: 200 - 300 MCG
     Route: 002
     Dates: start: 20140821, end: 20140823
  3. TAGAMET [Concomitant]
     Active Substance: CIMETIDINE
     Dosage: 200 MILLIGRAM DAILY;
     Route: 051
     Dates: start: 20140821, end: 20140910
  4. ELNEOPA NO.1 (MIXED AMINO ACID_CARBOHYDRATE_ELECTROLYTE_VITAMIN COMBIN [Concomitant]
     Dosage: 1500 ML DAILY;
     Route: 051
     Dates: start: 20140821, end: 20140910
  5. FENTANYL. [Concomitant]
     Active Substance: FENTANYL
     Indication: CANCER PAIN
     Dosage: 33.6 MICROGRAM DAILY;
     Route: 062
     Dates: start: 20140321, end: 20140910
  6. VERAPAMIL HCL [Concomitant]
     Active Substance: VERAPAMIL HYDROCHLORIDE
     Indication: BREAKTHROUGH PAIN
     Route: 054
     Dates: start: 20140821, end: 20140910

REACTIONS (1)
  - Colorectal cancer [Fatal]

NARRATIVE: CASE EVENT DATE: 20140910
